FAERS Safety Report 4567783-1 (Version None)
Quarter: 2005Q1

REPORT INFORMATION
  Report Type: 
  Country: None (occurrence: None)
  Receive Date: 20050125
  Receipt Date: 20050125
  Transmission Date: 20050727
  Serious: Yes (Hospitalization)
  Sender: FDA-Public Use
  Company Number: None

PATIENT
  Age: 67 Year
  Sex: Male
  Weight: 58.9676 kg

DRUGS (2)
  1. CELEBREX [Suspect]
     Indication: PANCREATIC CARCINOMA
     Dosage: 400 MG BID
  2. GEMZAR [Suspect]
     Dosage: 650MG/M2 Q WK

REACTIONS (1)
  - NO ADVERSE EFFECT [None]
